FAERS Safety Report 5968624-8 (Version None)
Quarter: 2008Q4

REPORT INFORMATION
  Report Type: 
  Country: None (occurrence: None)
  Receive Date: 20081126
  Receipt Date: 20081117
  Transmission Date: 20090506
  Serious: Yes (Other)
  Sender: FDA-Public Use
  Company Number: US-MERCK-0811USA03113

PATIENT
  Age: 65 Year
  Sex: Female

DRUGS (2)
  1. PRINIVIL [Suspect]
     Route: 048
  2. CEFTRIAXONE SODIUM [Suspect]
     Route: 065

REACTIONS (1)
  - HEPATOTOXICITY [None]
